FAERS Safety Report 4325652-6 (Version None)
Quarter: 2004Q1

REPORT INFORMATION
  Report Type: 
  Country: None (occurrence: None)
  Receive Date: 20040324
  Receipt Date: 20040308
  Transmission Date: 20041129
  Serious: Yes (Other)
  Sender: FDA-Public Use
  Company Number: USA040361259

PATIENT
  Sex: Female

DRUGS (1)
  1. FORTEO [Suspect]
     Dates: start: 20031201, end: 20040301

REACTIONS (4)
  - CARCINOMA [None]
  - CHROMATURIA [None]
  - PANCREATIC DISORDER [None]
  - PRURITUS [None]
